FAERS Safety Report 8245422-6 (Version None)
Quarter: 2012Q1

REPORT INFORMATION
  Report Type: 
  Country: None (occurrence: None)
  Receive Date: 20120329
  Receipt Date: 20120314
  Transmission Date: 20120608
  Serious: Yes (Hospitalization)
  Sender: FDA-Public Use
  Company Number: CHPA2012US005048

PATIENT
  Age: 27 Year
  Sex: Male

DRUGS (2)
  1. EXCEDRIN (MIGRAINE) [Suspect]
     Indication: HEADACHE
     Dosage: UNK DF, UNK
     Route: 048
     Dates: start: 20111201, end: 20111201
  2. LORTAB [Suspect]
     Indication: HEADACHE
     Dosage: UNK DF, UNK
     Dates: start: 20111201, end: 20111201

REACTIONS (11)
  - RHABDOMYOLYSIS [None]
  - RENAL FAILURE [None]
  - NEUROPATHY PERIPHERAL [None]
  - HEPATITIS TOXIC [None]
  - FATIGUE [None]
  - DRUG INEFFECTIVE [None]
  - DRUG ADMINISTRATION ERROR [None]
  - LOSS OF CONSCIOUSNESS [None]
  - UNRESPONSIVE TO STIMULI [None]
  - ACCIDENTAL OVERDOSE [None]
  - OVERDOSE [None]
